FAERS Safety Report 17064183 (Version 1)
Quarter: 2019Q4

REPORT INFORMATION
  Report Type: Spontaneous
  Country: US (occurrence: US)
  Receive Date: 20191122
  Receipt Date: 20191122
  Transmission Date: 20200122
  Serious: Yes (Hospitalization)
  Sender: FDA-Public Use
  Company Number: US-MYLANLABS-2019M1112684

PATIENT
  Age: 36 Year
  Sex: Male

DRUGS (1)
  1. FENTANYL. [Suspect]
     Active Substance: FENTANYL
     Indication: PRODUCT USED FOR UNKNOWN INDICATION
     Route: 045

REACTIONS (9)
  - Retinal ischaemia [Unknown]
  - Anterograde amnesia [Recovering/Resolving]
  - Eyelid ptosis [Unknown]
  - Amaurosis [Unknown]
  - Ophthalmoplegia [Recovered/Resolved]
  - Cerebral ischaemia [Unknown]
  - Overdose [Recovering/Resolving]
  - Retinopathy [Unknown]
  - Confusional state [Unknown]
